FAERS Safety Report 18617080 (Version 14)
Quarter: 2022Q2

REPORT INFORMATION
  Report Type: Other
  Country: DE (occurrence: None)
  Receive Date: 20201215
  Receipt Date: 20220616
  Transmission Date: 20220721
  Serious: Yes (Other)
  Sender: FDA-Public Use
  Company Number: DE-ROCHE-2728945

PATIENT
  Age: 34 Year
  Sex: Male

DRUGS (12)
  1. OCREVUS [Suspect]
     Active Substance: OCRELIZUMAB
     Indication: Relapsing-remitting multiple sclerosis
     Dosage: THEN 600 MG EVERY 197 DAYS
     Route: 042
     Dates: start: 20200914
  2. OCREVUS [Suspect]
     Active Substance: OCRELIZUMAB
     Dosage: (2ND MAINTENANCE DOSE)
     Route: 042
     Dates: start: 20210921, end: 20210921
  3. NABIXIMOLS [Suspect]
     Active Substance: NABIXIMOLS
     Indication: Product used for unknown indication
     Dosage: 2 TO 5 PUFFS
     Route: 065
     Dates: start: 20210216
  4. .DELTA.9-TETRAHYDROCANNABINOL\CANNABIDIOL\HERBALS [Suspect]
     Active Substance: .DELTA.9-TETRAHYDROCANNABINOL\CANNABIDIOL\HERBALS
     Indication: Product used for unknown indication
     Route: 065
  5. COMIRNATY [Suspect]
     Active Substance: TOZINAMERAN
     Indication: COVID-19 prophylaxis
     Dosage: NEXT DOSES ON 08/JUL/2021, 08/AUG/2021, 07/DEC/2021,26/JAN/2022
     Route: 065
     Dates: start: 20210627, end: 20210808
  6. PRIDINOL MESILATE [Suspect]
     Active Substance: PRIDINOL MESILATE
     Indication: Product used for unknown indication
     Route: 065
  7. CYCLOPHOSPHAMIDE [Suspect]
     Active Substance: CYCLOPHOSPHAMIDE
     Indication: Chemotherapy
     Route: 042
     Dates: start: 20220513
  8. VITAMIN B COMPLEX [Concomitant]
     Active Substance: CYANOCOBALAMIN\DEXPANTHENOL\NIACINAMIDE\PYRIDOXINE HYDROCHLORIDE\RIBOFLAVIN 5^-PHOSPHATE SODIUM\THIA
  9. VITAMIN B6 [Concomitant]
     Active Substance: PYRIDOXINE HYDROCHLORIDE
     Dosage: EVERY 2 TO 3 WEEKS
     Route: 030
  10. KRILL OIL [Concomitant]
     Active Substance: DIETARY SUPPLEMENT\KRILL OIL
  11. DALFAMPRIDINE [Concomitant]
     Active Substance: DALFAMPRIDINE
     Dosage: 1-0-1
  12. CANNABIDIOL\HERBALS [Concomitant]
     Active Substance: CANNABIDIOL\HERBALS

REACTIONS (28)
  - Cytokine release syndrome [Recovered/Resolved]
  - Multiple sclerosis relapse [Not Recovered/Not Resolved]
  - Multiple sclerosis [Recovered/Resolved]
  - Productive cough [Recovered/Resolved]
  - Oropharyngeal pain [Recovered/Resolved]
  - Peripheral coldness [Recovered/Resolved]
  - Dry throat [Recovered/Resolved]
  - Aphthous ulcer [Recovered/Resolved]
  - Sensory disturbance [Not Recovered/Not Resolved]
  - Joint stiffness [Recovered/Resolved]
  - Muscle spasticity [Recovering/Resolving]
  - Gait disturbance [Recovering/Resolving]
  - Stress [Not Recovered/Not Resolved]
  - Sleep disorder [Recovered/Resolved]
  - Nightmare [Recovered/Resolved]
  - Depression [Recovered/Resolved]
  - Nasal congestion [Not Recovered/Not Resolved]
  - Sinus congestion [Not Recovered/Not Resolved]
  - Extensor plantar response [Recovering/Resolving]
  - Intervertebral disc protrusion [Recovering/Resolving]
  - Spinal pain [Recovering/Resolving]
  - Pharyngeal swelling [Recovering/Resolving]
  - Infection [Recovering/Resolving]
  - Vaccination failure [Not Recovered/Not Resolved]
  - COVID-19 [Recovered/Resolved]
  - Fatigue [Recovered/Resolved]
  - B-lymphocyte count decreased [Not Recovered/Not Resolved]
  - Alopecia [Not Recovered/Not Resolved]

NARRATIVE: CASE EVENT DATE: 20200914
